FAERS Safety Report 4840603-3 (Version None)
Quarter: 2005Q4

REPORT INFORMATION
  Report Type: 
  Country: None (occurrence: None)
  Receive Date: 20051123
  Receipt Date: 20051116
  Transmission Date: 20060501
  Serious: Yes (Hospitalization)
  Sender: FDA-Public Use
  Company Number: 200510701BNE

PATIENT
  Sex: Male

DRUGS (3)
  1. SORAFENIB [Suspect]
     Indication: METASTATIC MALIGNANT MELANOMA
     Dosage: 200 MG, BID, ORAL
     Route: 048
     Dates: start: 20050916, end: 20051028
  2. DACARBAZINE [Suspect]
     Indication: METASTATIC MALIGNANT MELANOMA
     Dates: start: 20051007
  3. TINZAPARIN [Concomitant]

REACTIONS (1)
  - HAEMATEMESIS [None]
